FAERS Safety Report 18612192 (Version 1)
Quarter: 2020Q4

REPORT INFORMATION
  Report Type: Spontaneous
  Country: DE (occurrence: DE)
  Receive Date: 20201214
  Receipt Date: 20201214
  Transmission Date: 20210114
  Serious: Yes (Hospitalization, Other)
  Sender: FDA-Public Use
  Company Number: DE-BRISTOL-MYERS SQUIBB COMPANY-BMS-2020-098645

PATIENT
  Age: 79 Year
  Sex: Male
  Weight: 81 kg

DRUGS (3)
  1. TORASEMID AL [Suspect]
     Active Substance: TORSEMIDE
     Indication: FLUID RETENTION
     Dosage: 3 TABLET DAILY
     Route: 065
     Dates: start: 202007
  2. BISOPROLOL 1A PHARMA [Concomitant]
     Active Substance: BISOPROLOL
     Indication: ATRIAL FIBRILLATION
     Dosage: 2 TABLETS DAILY
     Route: 065
     Dates: start: 202007
  3. ELIQUIS [Suspect]
     Active Substance: APIXABAN
     Indication: FLUID RETENTION
     Dosage: 5 MILLIGRAM, BID
     Route: 065
     Dates: start: 202007

REACTIONS (5)
  - Gait disturbance [Unknown]
  - Intentional product use issue [Unknown]
  - Myalgia [Not Recovered/Not Resolved]
  - Drug ineffective for unapproved indication [Unknown]
  - Fluid retention [Not Recovered/Not Resolved]

NARRATIVE: CASE EVENT DATE: 202007
